FAERS Safety Report 6518961-3 (Version None)
Quarter: 2009Q4

REPORT INFORMATION
  Report Type: 
  Country: None (occurrence: None)
  Receive Date: 20091218
  Receipt Date: 20091210
  Transmission Date: 20100525
  Serious: Yes (Hospitalization)
  Sender: FDA-Public Use
  Company Number: ADR53322009

PATIENT
  Age: 41 Year
  Sex: Female

DRUGS (1)
  1. ALBUTEROL [Suspect]
     Indication: ASTHMA
     Dosage: 2 G INHALATION
     Route: 055

REACTIONS (3)
  - ACUTE MYOCARDIAL INFARCTION [None]
  - ARTERIOSPASM CORONARY [None]
  - OVERDOSE [None]
